FAERS Safety Report 21080384 (Version 2)
Quarter: 2022Q3

REPORT INFORMATION
  Report Type: Spontaneous
  Country: US (occurrence: US)
  Receive Date: 20220714
  Receipt Date: 20220902
  Transmission Date: 20221026
  Serious: No
  Sender: FDA-Public Use
  Company Number: US-BRISTOL-MYERS SQUIBB COMPANY-2022-073409

PATIENT
  Age: 67 Year
  Sex: Female

DRUGS (1)
  1. REVLIMID [Suspect]
     Active Substance: LENALIDOMIDE
     Indication: Plasma cell myeloma
     Dosage: FREQ: DAYS 1-21 PER 28 DAY CYCLE
     Route: 048
     Dates: start: 20210830

REACTIONS (3)
  - Treatment noncompliance [Unknown]
  - Diarrhoea [Unknown]
  - Product dose omission issue [Unknown]
